FAERS Safety Report 12737420 (Version 3)
Quarter: 2016Q4

REPORT INFORMATION
  Report Type: Spontaneous
  Country: US (occurrence: US)
  Receive Date: 20160913
  Receipt Date: 20161108
  Transmission Date: 20170207
  Serious: Yes (Other)
  Sender: FDA-Public Use
  Company Number: US-BAYER-2016-177622

PATIENT
  Age: 64 Year

DRUGS (1)
  1. NEXAVAR [Suspect]
     Active Substance: SORAFENIB
     Indication: HEPATOCELLULAR CARCINOMA
     Dosage: 400 MG, BID
     Route: 048
     Dates: start: 20160907

REACTIONS (5)
  - Headache [Not Recovered/Not Resolved]
  - Constipation [Recovered/Resolved]
  - Pain of skin [Not Recovered/Not Resolved]
  - Limb discomfort [None]
  - Pyrexia [Recovered/Resolved]

NARRATIVE: CASE EVENT DATE: 2016
